FAERS Safety Report 21984124 (Version 2)
Quarter: 2023Q1

REPORT INFORMATION
  Report Type: Other
  Country: US (occurrence: None)
  Receive Date: 20230213
  Receipt Date: 20230214
  Transmission Date: 20230418
  Serious: Yes (Hospitalization)
  Sender: FDA-Public Use
  Company Number: US-ROCHE-3282450

PATIENT
  Age: 57 Year
  Sex: Female

DRUGS (2)
  1. OCREVUS [Suspect]
     Active Substance: OCRELIZUMAB
     Indication: Autoimmune disorder
     Dosage: INFUSE 600MG INTRAVENOUSLY EVERY 6 MONTH(S)
     Route: 042
  2. OCREVUS [Suspect]
     Active Substance: OCRELIZUMAB
     Indication: Multiple sclerosis

REACTIONS (1)
  - COVID-19 pneumonia [Unknown]
